FAERS Safety Report 20778488 (Version 1)
Quarter: 2022Q2

REPORT INFORMATION
  Report Type: Spontaneous
  Country: US (occurrence: US)
  Receive Date: 20220503
  Receipt Date: 20220503
  Transmission Date: 20220720
  Serious: Yes (Hospitalization, Other)
  Sender: FDA-Public Use
  Company Number: US-AMNEAL PHARMACEUTICALS-2021-AMRX-03788

PATIENT
  Sex: Male
  Weight: 9 kg

DRUGS (7)
  1. VIGABATRIN [Suspect]
     Active Substance: VIGABATRIN
     Indication: Infantile spasms
     Dosage: 500MG(10ML) IN AM, 1000MG (20ML) IN PM
     Route: 048
     Dates: start: 20210608
  2. PHENOBARBITAL [Concomitant]
     Active Substance: PHENOBARBITAL
     Indication: Product used for unknown indication
     Dosage: UNK
     Route: 065
  3. PYRIDOXINE HYDROCHLORIDE [Concomitant]
     Active Substance: PYRIDOXINE HYDROCHLORIDE
     Indication: Product used for unknown indication
     Dosage: UNK
     Route: 065
  4. FAMOTIDINE [Concomitant]
     Active Substance: FAMOTIDINE
     Indication: Product used for unknown indication
     Dosage: UNK
     Route: 065
  5. KEPPRA [Concomitant]
     Active Substance: LEVETIRACETAM
     Indication: Product used for unknown indication
     Dosage: UNK
     Route: 065
  6. ACTHAR [Concomitant]
     Active Substance: CORTICOTROPIN
     Indication: Product used for unknown indication
     Dosage: UNK, 80 UNITS/ML VIAL
     Route: 065
  7. VIGADRONE [Concomitant]
     Active Substance: VIGABATRIN
     Indication: Infantile spasms
     Dosage: UNK
     Route: 065

REACTIONS (3)
  - Respiratory syncytial virus infection [Unknown]
  - Epilepsy [Unknown]
  - Product dose omission issue [Unknown]

NARRATIVE: CASE EVENT DATE: 20210101
